FAERS Safety Report 21388223 (Version 1)
Quarter: 2022Q3

REPORT INFORMATION
  Report Type: Spontaneous
  Country: FR (occurrence: FR)
  Receive Date: 20220928
  Receipt Date: 20220928
  Transmission Date: 20221026
  Serious: Yes (Death, Other)
  Sender: FDA-Public Use
  Company Number: None

PATIENT

DRUGS (3)
  1. CITALOPRAM HYDROBROMIDE [Suspect]
     Active Substance: CITALOPRAM HYDROBROMIDE
     Indication: Product used for unknown indication
     Dosage: UNK
     Dates: start: 2019, end: 2019
  2. ALCOHOL [Suspect]
     Active Substance: ALCOHOL
     Indication: Product used for unknown indication
     Dosage: UNK
     Dates: end: 2019
  3. METHADONE HYDROCHLORIDE [Suspect]
     Active Substance: METHADONE HYDROCHLORIDE
     Indication: Product used for unknown indication
     Dosage: UNK
     Dates: end: 2019

REACTIONS (2)
  - Asphyxia [Fatal]
  - Drug abuse [Fatal]
